FAERS Safety Report 9170301 (Version 1)
Quarter: 2013Q1

REPORT INFORMATION
  Report Type: Report from Study
  Country: US (occurrence: US)
  Receive Date: 20130319
  Receipt Date: 20130319
  Transmission Date: 20140127
  Serious: Yes (Other)
  Sender: FDA-Public Use
  Company Number: US-JNJFOC-20130309970

PATIENT
  Age: 39 Year
  Sex: Male

DRUGS (3)
  1. REMICADE [Suspect]
     Indication: COLITIS ULCERATIVE
     Route: 042
  2. IMURAN [Suspect]
     Indication: COLITIS ULCERATIVE
     Route: 065
  3. PREDNISONE [Suspect]
     Indication: COLITIS ULCERATIVE
     Route: 065

REACTIONS (2)
  - Intestinal resection [Unknown]
  - Pregnancy of partner [Recovered/Resolved]
